FAERS Safety Report 8098340-0 (Version None)
Quarter: 2012Q1

REPORT INFORMATION
  Report Type: 
  Country: None (occurrence: None)
  Receive Date: 20120131
  Receipt Date: 20120125
  Transmission Date: 20120608
  Serious: Yes (Life-Threatening)
  Sender: FDA-Public Use
  Company Number: BE-SANOFI-AVENTIS-2012SA005365

PATIENT
  Age: 55 Year
  Sex: Female

DRUGS (3)
  1. OMEPRAZOLE [Concomitant]
     Route: 065
  2. ANTIEMETICS AND ANTINAUSEANTS [Concomitant]
     Route: 065
  3. DOCETAXEL [Suspect]
     Indication: BREAST CANCER
     Route: 065

REACTIONS (10)
  - GASTROINTESTINAL DISORDER [None]
  - PYREXIA [None]
  - ABDOMINAL INFECTION [None]
  - DIARRHOEA [None]
  - CLOSTRIDIUM DIFFICILE SEPSIS [None]
  - PARAMETRITIS [None]
  - GASTROINTESTINAL NECROSIS [None]
  - ABSCESS [None]
  - FEBRILE NEUTROPENIA [None]
  - ABDOMINAL PAIN [None]
